FAERS Safety Report 9072777 (Version 1)
Quarter: 2013Q1

REPORT INFORMATION
  Report Type: Spontaneous
  Country: CH (occurrence: CH)
  Receive Date: 20130207
  Receipt Date: 20130207
  Transmission Date: 20140127
  Serious: Yes (Hospitalization)
  Sender: FDA-Public Use
  Company Number: CH-ELI_LILLY_AND_COMPANY-CH201302000341

PATIENT
  Age: 18 Year
  Sex: Male

DRUGS (6)
  1. ZYPREXA [Suspect]
     Dosage: 10 MG, BID
     Dates: start: 20120727
  2. DEPAKINE CHRONO [Concomitant]
     Dosage: 500 MG, BID
     Route: 048
     Dates: end: 20121227
  3. CIPRALEX [Concomitant]
     Dosage: 10 MG, QD
  4. ENTUMIN [Concomitant]
     Dosage: 20 MG, BID
  5. TEMESTA [Concomitant]
     Dosage: 2.5 MG, TID
  6. AKINETON                                /AUS/ [Concomitant]
     Dosage: 2 MG, BID

REACTIONS (7)
  - Autoimmune hepatitis [Recovering/Resolving]
  - Non-alcoholic steatohepatitis [Recovering/Resolving]
  - Drug-induced liver injury [Recovering/Resolving]
  - Aspartate aminotransferase increased [Recovering/Resolving]
  - Alanine aminotransferase increased [Recovering/Resolving]
  - Gamma-glutamyltransferase increased [Recovering/Resolving]
  - Weight increased [Not Recovered/Not Resolved]
